FAERS Safety Report 8529569-2 (Version None)
Quarter: 2012Q3

REPORT INFORMATION
  Report Type: 
  Country: None (occurrence: None)
  Receive Date: 20120710
  Receipt Date: 20120701
  Transmission Date: 20120928
  Serious: Yes (Death)
  Sender: FDA-Public Use
  Company Number: DSA_57764_2012

PATIENT
  Sex: Male
  Weight: 63.5036 kg

DRUGS (5)
  1. ZOLOFT [Suspect]
     Indication: ANXIETY
     Dosage: (150 MG QD ORAL)
     Route: 048
     Dates: start: 20101026, end: 20120220
  2. ZOLOFT [Suspect]
     Indication: DEPRESSION
     Dosage: (150 MG QD ORAL)
     Route: 048
     Dates: start: 20101026, end: 20120220
  3. XENAZINE [Suspect]
     Indication: HUNTINGTON'S DISEASE
     Dosage: (25 MG BID), (25 MG TID), (37.5 MG BID ORAL)
     Route: 048
     Dates: start: 20110101
  4. XENAZINE [Suspect]
     Indication: HUNTINGTON'S DISEASE
     Dosage: (25 MG BID), (25 MG TID), (37.5 MG BID ORAL)
     Route: 048
     Dates: start: 20110101
  5. XENAZINE [Suspect]
     Indication: HUNTINGTON'S DISEASE
     Dosage: (25 MG BID), (25 MG TID), (37.5 MG BID ORAL)
     Route: 048
     Dates: end: 20120220

REACTIONS (7)
  - EYELID PTOSIS [None]
  - MOBILITY DECREASED [None]
  - AGGRESSION [None]
  - AGITATION [None]
  - COMMUNICATION DISORDER [None]
  - DYSPHAGIA [None]
  - DRUG EFFECT DECREASED [None]
